FAERS Safety Report 11618399 (Version 3)
Quarter: 2017Q2

REPORT INFORMATION
  Report Type: Spontaneous
  Country: US (occurrence: US)
  Receive Date: 20151012
  Receipt Date: 20170501
  Transmission Date: 20170829
  Serious: Yes (Hospitalization, Disabling, Other)
  Sender: FDA-Public Use
  Company Number: US-ROCHE-1642918

PATIENT
  Sex: Female

DRUGS (3)
  1. PREDNISONE. [Concomitant]
     Active Substance: PREDNISONE
  2. RITUXAN [Suspect]
     Active Substance: RITUXIMAB
     Indication: RHEUMATOID ARTHRITIS
     Route: 042
     Dates: start: 20140416, end: 20140430
  3. RITUXAN [Suspect]
     Active Substance: RITUXIMAB
     Route: 042
     Dates: start: 20140902, end: 20140916

REACTIONS (10)
  - Depression [Unknown]
  - Scleritis [Unknown]
  - Corneal perforation [Unknown]
  - Fall [Unknown]
  - Blindness [Not Recovered/Not Resolved]
  - Eye infection fungal [Unknown]
  - Uveitis [Unknown]
  - Blindness unilateral [Unknown]
  - Visual impairment [Unknown]
  - Ulcerative keratitis [Unknown]
